FAERS Safety Report 4703124-4 (Version None)
Quarter: 2005Q2

REPORT INFORMATION
  Report Type: 
  Country: None (occurrence: None)
  Receive Date: 20050629
  Receipt Date: 20040419
  Transmission Date: 20051028
  Serious: Yes (Death)
  Sender: FDA-Public Use
  Company Number: ES-GLAXOSMITHKLINE-B0330534A

PATIENT
  Age: 36 Month
  Sex: Male

DRUGS (2)
  1. BUSULFAN [Suspect]
     Indication: BONE MARROW TRANSPLANT
     Dosage: 4MGK PER DAY
     Route: 048
  2. MELPHALAN [Suspect]
     Indication: BONE MARROW TRANSPLANT
     Dosage: 140MGM2 PER DAY
     Route: 042

REACTIONS (6)
  - BONE MARROW DEPRESSION [None]
  - FEBRILE NEUTROPENIA [None]
  - GASTROINTESTINAL TOXICITY [None]
  - MUCOSAL INFLAMMATION [None]
  - PAIN [None]
  - SEPSIS [None]
